FAERS Safety Report 11857761 (Version 1)
Quarter: 2015Q4

REPORT INFORMATION
  Report Type: Spontaneous
  Country: US (occurrence: None)
  Receive Date: 20151221
  Receipt Date: 20151221
  Transmission Date: 20160305
  Serious: Yes (Other)
  Sender: FDA-Public Use
  Company Number: None

PATIENT
  Age: 48 Year
  Sex: Female
  Weight: 111.59 kg

DRUGS (9)
  1. LAMICTAL [Concomitant]
     Active Substance: LAMOTRIGINE
  2. WELLBUTRIN [Concomitant]
     Active Substance: BUPROPION HYDROCHLORIDE
  3. MULTIVITAMIN FEMALE OVER 50 [Concomitant]
  4. LEVOFLOXACIN 500 MG JANSSEN PHARMACEUTICALS [Suspect]
     Active Substance: LEVOFLOXACIN
     Indication: SINUSITIS
     Route: 048
     Dates: end: 20151003
  5. LEVOFLOXACIN 500 MG JANSSEN PHARMACEUTICALS [Suspect]
     Active Substance: LEVOFLOXACIN
     Indication: EAR INFECTION
     Route: 048
     Dates: end: 20151003
  6. ABILIFY [Concomitant]
     Active Substance: ARIPIPRAZOLE
  7. BIPAP [Concomitant]
     Active Substance: DEVICE
  8. LEVOFLOXACIN 500 MG JANSSEN PHARMACEUTICALS [Suspect]
     Active Substance: LEVOFLOXACIN
     Indication: BRONCHITIS
     Route: 048
     Dates: end: 20151003
  9. XANAX [Concomitant]
     Active Substance: ALPRAZOLAM

REACTIONS (4)
  - Swelling [None]
  - Neuropathy peripheral [None]
  - Tarsal tunnel syndrome [None]
  - Tendon disorder [None]

NARRATIVE: CASE EVENT DATE: 20151003
